FAERS Safety Report 17952936 (Version 1)
Quarter: 2020Q2

REPORT INFORMATION
  Report Type: Spontaneous
  Country: GB (occurrence: GB)
  Receive Date: 20200627
  Receipt Date: 20200627
  Transmission Date: 20200714
  Serious: Yes (Life-Threatening, Hospitalization, Disabling)
  Sender: FDA-Public Use
  Company Number: GB-ACCORD-187087

PATIENT
  Age: 77 Year
  Sex: Male
  Weight: 80 kg

DRUGS (4)
  1. GEMCITABINE/GEMCITABINE HYDROCHLORIDE [Suspect]
     Active Substance: GEMCITABINE\GEMCITABINE HYDROCHLORIDE
     Indication: PANCREATIC CARCINOMA
     Route: 042
     Dates: start: 20200609, end: 20200609
  2. DEXAMETHASONE. [Suspect]
     Active Substance: DEXAMETHASONE
     Indication: ANTIEMETIC SUPPORTIVE CARE
     Route: 048
     Dates: start: 20200609, end: 20200611
  3. NEFOPAM [Concomitant]
     Active Substance: NEFOPAM
  4. RAMIPRIL. [Concomitant]
     Active Substance: RAMIPRIL

REACTIONS (1)
  - Intestinal perforation [Unknown]

NARRATIVE: CASE EVENT DATE: 20200611
